FAERS Safety Report 9572334 (Version 1)
Quarter: 2013Q3

REPORT INFORMATION
  Report Type: Spontaneous
  Country: US (occurrence: None)
  Receive Date: 20130930
  Receipt Date: 20130930
  Transmission Date: 20140515
  Serious: Yes (Hospitalization)
  Sender: FDA-Public Use
  Company Number: None

PATIENT
  Age: 50 Year
  Sex: Male
  Weight: 83.2 kg

DRUGS (1)
  1. MOXIFLOXACIN [Suspect]
     Indication: BRONCHITIS
     Route: 048
     Dates: start: 20130730, end: 20130806

REACTIONS (2)
  - Drug hypersensitivity [None]
  - Angioedema [None]
